FAERS Safety Report 6464859-9 (Version None)
Quarter: 2009Q4

REPORT INFORMATION
  Report Type: 
  Country: None (occurrence: None)
  Receive Date: 20091201
  Receipt Date: 20091124
  Transmission Date: 20100525
  Serious: Yes (Hospitalization)
  Sender: FDA-Public Use
  Company Number: A0832066A

PATIENT
  Age: 65 Year
  Sex: Female

DRUGS (1)
  1. AVANDIA [Suspect]
     Dosage: 8MG PER DAY
     Route: 048
     Dates: start: 20070101, end: 20080101

REACTIONS (4)
  - AORTIC ANEURYSM [None]
  - ARTERIAL DISORDER [None]
  - ARTERIAL OCCLUSIVE DISEASE [None]
  - CARDIAC DISORDER [None]
